FAERS Safety Report 7107477-1 (Version None)
Quarter: 2010Q4

REPORT INFORMATION
  Report Type: 
  Country: None (occurrence: None)
  Receive Date: 20101112
  Receipt Date: 20101029
  Transmission Date: 20110411
  Serious: Yes (Other)
  Sender: FDA-Public Use
  Company Number: DSM-2010-01608

PATIENT
  Age: 82 Year
  Sex: Female
  Weight: 60 kg

DRUGS (5)
  1. SEVIKAR (OLMESARTAN MEDOXOMIL, AMLODIPINE BESILATE) (TABLET) (OLMESART [Suspect]
     Indication: HYPERTENSION
     Dosage: 20/5 MG (1 IN 1 D),ORAL
     Route: 048
     Dates: start: 20100927, end: 20100930
  2. SEVIKAR (OLMESARTAN MEDOXOMIL, AMLODIPINE BESILATE) (TABLET) (OLMESART [Suspect]
     Indication: TACHYCARDIA
     Dosage: 20/5 MG (1 IN 1 D),ORAL
     Route: 048
     Dates: start: 20100927, end: 20100930
  3. BERODUAL DOS (FENOTEROL HYDROBROMIDE, IPRATROPIUM BROMIDE) (FENOTEROL [Concomitant]
  4. ALVESCO (CICLESONIDE) (CICLESONIDE) [Concomitant]
  5. FORMOTEROL (FORMOTEROL) (FORMOTEROL) [Concomitant]

REACTIONS (2)
  - GLOSSODYNIA [None]
  - SWOLLEN TONGUE [None]
